FAERS Safety Report 5152995-9 (Version None)
Quarter: 2006Q4

REPORT INFORMATION
  Report Type: 
  Country: None (occurrence: None)
  Receive Date: 20061117
  Receipt Date: 20061101
  Transmission Date: 20070319
  Serious: Yes (Death)
  Sender: FDA-Public Use
  Company Number: US-BRISTOL-MYERS SQUIBB COMPANY-13565098

PATIENT
  Age: 74 Year
  Sex: Female

DRUGS (6)
  1. ORENCIA [Suspect]
     Route: 042
     Dates: start: 20060520
  2. METHOTREXATE [Concomitant]
     Dates: start: 20060901
  3. PREDNISONE TAB [Concomitant]
  4. VICODIN [Concomitant]
     Indication: PAIN MANAGEMENT
  5. PROCARDIA [Concomitant]
  6. ATENOLOL [Concomitant]

REACTIONS (1)
  - SUDDEN DEATH [None]
